FAERS Safety Report 19158803 (Version 4)
Quarter: 2021Q3

REPORT INFORMATION
  Report Type: Spontaneous
  Country: US (occurrence: US)
  Receive Date: 20210420
  Receipt Date: 20210730
  Transmission Date: 20211014
  Serious: Yes (Hospitalization, Other)
  Sender: FDA-Public Use
  Company Number: US-ORGANON-1104USA01379

PATIENT
  Sex: Female
  Weight: 61.69 kg

DRUGS (50)
  1. FORTEO [Suspect]
     Active Substance: TERIPARATIDE
     Indication: OSTEOPOROSIS
     Dosage: 20 MICROGRAM, QD, VIA PRE?FILLED PEN
     Dates: start: 20101001
  2. PREMARIN [Concomitant]
     Active Substance: ESTROGENS, CONJUGATED
     Dosage: UNK
     Dates: end: 201105
  3. VITAMINS NOS [Concomitant]
     Active Substance: VITAMINS
     Dosage: UNK
  4. CALCIUM [Concomitant]
     Active Substance: CALCIUM
     Dosage: UNK
  5. ROFECOXIB [Concomitant]
     Active Substance: ROFECOXIB
     Dosage: UNK
     Route: 048
  6. VITAMIN D NOS [Concomitant]
     Active Substance: VITAMIN D NOS
     Dosage: UNK
  7. PREMARIN [Concomitant]
     Active Substance: ESTROGENS, CONJUGATED
     Dosage: UNK
     Dates: end: 201105
  8. PREMARIN [Concomitant]
     Active Substance: ESTROGENS, CONJUGATED
     Dosage: UNK
     Dates: end: 201105
  9. PREMARIN [Concomitant]
     Active Substance: ESTROGENS, CONJUGATED
     Dosage: UNK
     Dates: end: 201105
  10. CALCIUM [Concomitant]
     Active Substance: CALCIUM
     Dosage: UNK
  11. CALCIUM [Concomitant]
     Active Substance: CALCIUM
     Dosage: UNK
  12. CALCIUM [Concomitant]
     Active Substance: CALCIUM
     Dosage: UNK
  13. CALCIUM [Concomitant]
     Active Substance: CALCIUM
     Dosage: UNK
  14. ROFECOXIB [Concomitant]
     Active Substance: ROFECOXIB
     Dosage: UNK
     Route: 048
  15. ROFECOXIB [Concomitant]
     Active Substance: ROFECOXIB
     Dosage: UNK
     Route: 048
  16. VITAMIN D NOS [Concomitant]
     Active Substance: VITAMIN D NOS
     Dosage: UNK
  17. PREMARIN [Concomitant]
     Active Substance: ESTROGENS, CONJUGATED
     Dosage: UNK
     Dates: end: 201105
  18. VITAMINS NOS [Concomitant]
     Active Substance: VITAMINS
     Dosage: UNK
  19. CALCIUM [Concomitant]
     Active Substance: CALCIUM
     Dosage: UNK
  20. ROFECOXIB [Concomitant]
     Active Substance: ROFECOXIB
     Dosage: UNK
     Route: 048
  21. PREMARIN [Concomitant]
     Active Substance: ESTROGENS, CONJUGATED
     Dosage: UNK
     Dates: end: 201105
  22. CALCIUM [Concomitant]
     Active Substance: CALCIUM
     Dosage: UNK
  23. ROFECOXIB [Concomitant]
     Active Substance: ROFECOXIB
     Indication: OSTEOARTHRITIS
     Dosage: UNK
     Route: 048
  24. ROFECOXIB [Concomitant]
     Active Substance: ROFECOXIB
     Dosage: UNK
     Route: 048
  25. ROFECOXIB [Concomitant]
     Active Substance: ROFECOXIB
     Dosage: UNK
     Route: 048
  26. FISH OIL [Concomitant]
     Active Substance: FISH OIL
     Dosage: UNK
     Dates: start: 1996
  27. VITAMIN D NOS [Concomitant]
     Active Substance: VITAMIN D NOS
     Dosage: UNK
  28. FOSAMAX [Suspect]
     Active Substance: ALENDRONATE SODIUM
     Indication: OSTEOPOROSIS PROPHYLAXIS
     Dosage: 10 MG, QD
     Route: 048
     Dates: start: 19990816, end: 20090921
  29. ALENDRONATE SODIUM. [Suspect]
     Active Substance: ALENDRONATE SODIUM
     Dosage: 70 MG, UNK
     Dates: start: 20090105, end: 20100623
  30. PREMARIN [Concomitant]
     Active Substance: ESTROGENS, CONJUGATED
     Dosage: UNK
     Dates: end: 201105
  31. VITAMINS NOS [Concomitant]
     Active Substance: VITAMINS
     Dosage: UNK
  32. CALCIUM [Concomitant]
     Active Substance: CALCIUM
     Dosage: UNK
  33. ROFECOXIB [Concomitant]
     Active Substance: ROFECOXIB
     Dosage: UNK
     Route: 048
  34. ROFECOXIB [Concomitant]
     Active Substance: ROFECOXIB
     Dosage: UNK
     Route: 048
  35. VITAMINS NOS [Concomitant]
     Active Substance: VITAMINS
     Dosage: UNK
  36. CALCIUM [Concomitant]
     Active Substance: CALCIUM
     Dosage: UNK
  37. CALCIUM [Concomitant]
     Active Substance: CALCIUM
     Dosage: UNK
  38. CALCIUM [Concomitant]
     Active Substance: CALCIUM
     Dosage: UNK
  39. PREMARIN [Concomitant]
     Active Substance: ESTROGENS, CONJUGATED
     Dosage: UNK
     Dates: end: 201105
  40. PREMARIN [Concomitant]
     Active Substance: ESTROGENS, CONJUGATED
     Dosage: UNK
     Dates: end: 201105
  41. PREMARIN [Concomitant]
     Active Substance: ESTROGENS, CONJUGATED
     Dosage: UNK
     Dates: end: 201105
  42. PREMARIN [Concomitant]
     Active Substance: ESTROGENS, CONJUGATED
     Dosage: UNK
     Dates: end: 201105
  43. CALCIUM [Concomitant]
     Active Substance: CALCIUM
     Dosage: UNK
  44. NICOTINIC ACID [Concomitant]
     Active Substance: NIACIN
     Dosage: UNK
     Dates: start: 1991
  45. FOSAMAX [Suspect]
     Active Substance: ALENDRONATE SODIUM
     Indication: OSTEOPENIA
     Dosage: 70 MG, QW
     Route: 048
     Dates: start: 20021126, end: 20090211
  46. PREMARIN [Concomitant]
     Active Substance: ESTROGENS, CONJUGATED
     Dosage: UNK
     Dates: end: 201105
  47. ROFECOXIB [Concomitant]
     Active Substance: ROFECOXIB
     Indication: OSTEOARTHRITIS
     Dosage: UNK
     Route: 048
  48. ROFECOXIB [Concomitant]
     Active Substance: ROFECOXIB
     Dosage: UNK
     Route: 048
  49. ROFECOXIB [Concomitant]
     Active Substance: ROFECOXIB
     Dosage: UNK
     Route: 048
  50. VITAMIN D NOS [Concomitant]
     Active Substance: VITAMIN D NOS
     Dosage: UNK

REACTIONS (57)
  - Periorbital cellulitis [Unknown]
  - Low turnover osteopathy [Unknown]
  - Fall [Unknown]
  - Bone cyst [Unknown]
  - Eye allergy [Unknown]
  - Acne [Unknown]
  - Urethral dilatation [Unknown]
  - Arthropod bite [Unknown]
  - Gallbladder disorder [Unknown]
  - Loose tooth [Unknown]
  - Muscle spasms [Unknown]
  - Acute sinusitis [Unknown]
  - Asthma [Unknown]
  - Varicella [Unknown]
  - Pain in extremity [Unknown]
  - Gait disturbance [Unknown]
  - Arthralgia [Unknown]
  - Radius fracture [Unknown]
  - Spinal disorder [Unknown]
  - Neck pain [Unknown]
  - Cyst rupture [Unknown]
  - Spinal compression fracture [Unknown]
  - Osteoarthritis [Unknown]
  - Renal failure [Unknown]
  - Vertebral artery occlusion [Unknown]
  - Vertebral artery stenosis [Unknown]
  - Femur fracture [Unknown]
  - Femoral neck fracture [Unknown]
  - Fatigue [Unknown]
  - Hyperlipidaemia [Unknown]
  - Bronchitis [Unknown]
  - Back pain [Unknown]
  - Seborrhoeic keratosis [Not Recovered/Not Resolved]
  - Arthralgia [Unknown]
  - Ankle fracture [Unknown]
  - Colon adenoma [Unknown]
  - Intervertebral disc degeneration [Unknown]
  - Seasonal allergy [Unknown]
  - Gait disturbance [Unknown]
  - Mucinous breast carcinoma [Unknown]
  - Haematuria [Unknown]
  - Cerebellar stroke [Unknown]
  - Femur fracture [Unknown]
  - Aphthous ulcer [Unknown]
  - Body height decreased [Unknown]
  - Gingival disorder [Unknown]
  - Dermatitis contact [Unknown]
  - Elastofibroma [Unknown]
  - Lipoma [Unknown]
  - Lip neoplasm [Unknown]
  - Hypertension [Unknown]
  - Cyst [Unknown]
  - Fall [Recovered/Resolved]
  - Anaemia [Unknown]
  - Tonsillar disorder [Unknown]
  - Cerebrovascular accident [Unknown]
  - Punctate keratosis [Unknown]

NARRATIVE: CASE EVENT DATE: 2001
